FAERS Safety Report 12246333 (Version 2)
Quarter: 2016Q2

REPORT INFORMATION
  Report Type: Spontaneous
  Country: JP (occurrence: JP)
  Receive Date: 20160407
  Receipt Date: 20160629
  Transmission Date: 20160815
  Serious: Yes (Other)
  Sender: FDA-Public Use
  Company Number: JP-BAYER-2016-061404

PATIENT
  Age: 0 Year
  Sex: Female
  Weight: 1.06 kg

DRUGS (6)
  1. GAMOFA [Concomitant]
     Active Substance: FAMOTIDINE
     Indication: ABDOMINAL PAIN UPPER
     Dosage: DAILY DOSE 20 MG
     Route: 064
     Dates: start: 20090309
  2. BAYASPIRIN [Suspect]
     Active Substance: ASPIRIN
     Indication: CEREBELLAR INFARCTION
  3. HEPARIN CALCIUM [Suspect]
     Active Substance: HEPARIN CALCIUM
     Indication: THROMBOSIS PROPHYLAXIS
     Dosage: DAILY DOSE 10000 U
     Route: 064
     Dates: start: 20110120, end: 20111130
  4. ALEVIATIN [Concomitant]
     Active Substance: PHENYTOIN SODIUM
     Indication: EPILEPSY
     Dosage: DAILY DOSE 50 MG
     Route: 064
     Dates: start: 20090330
  5. BAYASPIRIN [Suspect]
     Active Substance: ASPIRIN
     Indication: ANTIPHOSPHOLIPID SYNDROME
     Dosage: 100 MG, QD
     Route: 064
     Dates: start: 20090916, end: 20110628
  6. RINDERON V [Concomitant]
     Active Substance: BETAMETHASONE VALERATE
     Indication: THREATENED LABOUR
     Dosage: UNK
     Route: 064
     Dates: start: 20110630

REACTIONS (4)
  - Premature baby [None]
  - Neonatal respiratory distress syndrome [None]
  - Foetal exposure timing unspecified [Recovered/Resolved]
  - Low birth weight baby [None]

NARRATIVE: CASE EVENT DATE: 2011
